FAERS Safety Report 14087768 (Version 2)
Quarter: 2017Q4

REPORT INFORMATION
  Report Type: Spontaneous
  Country: JP (occurrence: JP)
  Receive Date: 20171013
  Receipt Date: 20171026
  Transmission Date: 20180321
  Serious: Yes (Other)
  Sender: FDA-Public Use
  Company Number: JP-BAYER-2017-190595

PATIENT
  Age: 34 Year
  Sex: Female

DRUGS (1)
  1. BAYASPIRIN 100 MG [Suspect]
     Active Substance: ASPIRIN
     Indication: FACTOR XII DEFICIENCY
     Dosage: 100 MG, QD
     Route: 048
     Dates: start: 20170927

REACTIONS (5)
  - Palpitations [Unknown]
  - Arrhythmia [Unknown]
  - Product use in unapproved indication [None]
  - Off label use [None]
  - Exposure during pregnancy [None]

NARRATIVE: CASE EVENT DATE: 20170927
